FAERS Safety Report 26097788 (Version 1)
Quarter: 2025Q4

REPORT INFORMATION
  Report Type: Spontaneous
  Country: EU (occurrence: EU)
  Receive Date: 20251127
  Receipt Date: 20251127
  Transmission Date: 20260117
  Serious: Yes (Other)
  Sender: CELLTRION
  Company Number: EU-ABBVIE-6272205

PATIENT

DRUGS (3)
  1. RITUXIMAB [Suspect]
     Active Substance: RITUXIMAB
     Indication: B-cell small lymphocytic lymphoma
     Dosage: UNK
     Dates: end: 201912
  2. VENCLEXTA [Suspect]
     Active Substance: VENETOCLAX
     Indication: B-cell small lymphocytic lymphoma
     Route: 048
     Dates: start: 2019, end: 202009
  3. IBRUTINIB [Suspect]
     Active Substance: IBRUTINIB
     Indication: Product used for unknown indication
     Dosage: UNK
     Route: 048

REACTIONS (11)
  - Urinary tract obstruction [Unknown]
  - Lymphoma [Not Recovered/Not Resolved]
  - Neoplasm malignant [Unknown]
  - Bronchial carcinoma [Unknown]
  - Kidney infection [Unknown]
  - Hydronephrosis [Unknown]
  - Pulmonary mass [Unknown]
  - Pulmonary mass [Unknown]
  - Oedema peripheral [Unknown]
  - Lung infiltration [Unknown]
  - Off label use [Unknown]

NARRATIVE: CASE EVENT DATE: 20190901
